FAERS Safety Report 11179723 (Version 1)
Quarter: 2015Q2

REPORT INFORMATION
  Report Type: Spontaneous
  Country: US (occurrence: None)
  Receive Date: 20150609
  Receipt Date: 20150609
  Transmission Date: 20150821
  Serious: Yes (Hospitalization)
  Sender: FDA-Public Use
  Company Number: SP09334

PATIENT
  Age: 35 Year
  Sex: Female
  Weight: 79.38 kg

DRUGS (5)
  1. RELISTOR [Suspect]
     Active Substance: METHYLNALTREXONE BROMIDE
     Indication: PRODUCT USED FOR UNKNOWN INDICATION
     Route: 058
     Dates: start: 20150326
  2. OXYCODONE [Concomitant]
     Active Substance: OXYCODONE
  3. CARISOPRODOL. [Concomitant]
     Active Substance: CARISOPRODOL
  4. ARMODAFINIL. [Concomitant]
     Active Substance: ARMODAFINIL
  5. OXYCONTIN [Concomitant]
     Active Substance: OXYCODONE HYDROCHLORIDE

REACTIONS (5)
  - Dehydration [None]
  - Abdominal pain upper [None]
  - Haematemesis [None]
  - Vomiting [None]
  - Nausea [None]

NARRATIVE: CASE EVENT DATE: 201503
